FAERS Safety Report 4434383-3 (Version None)
Quarter: 2004Q3

REPORT INFORMATION
  Report Type: 
  Country: None (occurrence: None)
  Receive Date: 20040726
  Receipt Date: 20040405
  Transmission Date: 20050211
  Serious: No
  Sender: FDA-Public Use
  Company Number: USA040464191

PATIENT
  Age: 59 Year
  Sex: Female
  Weight: 35 kg

DRUGS (5)
  1. FORTEO [Suspect]
     Indication: OSTEOPOROSIS
     Dosage: 20 UG/1 DAY
     Dates: start: 20030416
  2. CITRACAL (CALCIUM CITRATE) [Concomitant]
  3. AMBIEN [Concomitant]
  4. LORAZEPAM [Concomitant]
  5. PROTONIX [Concomitant]

REACTIONS (4)
  - BLOOD CALCIUM INCREASED [None]
  - BONE PAIN [None]
  - MUSCLE CRAMP [None]
  - MYALGIA [None]
